FAERS Safety Report 19489296 (Version 1)
Quarter: 2021Q3

REPORT INFORMATION
  Report Type: Spontaneous
  Country: DE (occurrence: DE)
  Receive Date: 20210703
  Receipt Date: 20210703
  Transmission Date: 20211014
  Serious: Yes (Hospitalization)
  Sender: FDA-Public Use
  Company Number: DE-TEVA-2021-DE-1928328

PATIENT
  Age: 80 Year
  Sex: Female

DRUGS (19)
  1. SPIRIVA RESPIMAT 2,5MIKROGRAMM [Concomitant]
     Dosage: 2.5 MICROGRAM DAILY; 1?0?0?0,
  2. CETIRIZIN?ADGC [Concomitant]
     Dosage: 20 MILLIGRAM DAILY; 1?0?1?0
  3. METAMIZOL [Concomitant]
     Active Substance: METAMIZOLE SODIUM
     Dosage: 1500 MILLIGRAM DAILY; 1?1?1?0
  4. PANTOPRAZOL [Concomitant]
     Active Substance: PANTOPRAZOLE SODIUM
     Dosage: 80 MILLIGRAM DAILY;  1?0?1?0
  5. INSULIN GLARGIN [Concomitant]
     Active Substance: INSULIN GLARGINE
     Dosage: 8 IU (INTERNATIONAL UNIT) DAILY; 0?0?1?0
  6. CANDECOR 16MG [Concomitant]
     Dosage: 32 MILLIGRAM DAILY;  1?0?1?0
  7. PHENPROCOUMON [Concomitant]
     Active Substance: PHENPROCOUMON
     Dosage: 3 MG, ACCORDING TO INR
  8. AMLODIPIN [Concomitant]
     Active Substance: AMLODIPINE BESYLATE
     Dosage: 10 MILLIGRAM DAILY;  1?0?1?0
  9. METOPROLOL. [Concomitant]
     Active Substance: METOPROLOL
     Dosage: 190 MILLIGRAM DAILY;  1?0?1?0
  10. MELPERON [Concomitant]
     Active Substance: MELPERONE
     Dosage: 25 MILLIGRAM DAILY; 0?0?1?0
  11. SITAGLIPTIN [Concomitant]
     Active Substance: SITAGLIPTIN
     Dosage: 50 MILLIGRAM DAILY;  1?0?1?0
  12. ONDANSETRON [Concomitant]
     Active Substance: ONDANSETRON
     Dosage: .5 DOSAGE FORMS DAILY;  0?0?0.5?0
  13. SALBUTAMOL [Concomitant]
     Active Substance: ALBUTEROL
     Dosage: METERED DOSE INHALER , 0.1 MG, IF NECESSARY
  14. LEVOTHYROXIN?NATRIUM [Concomitant]
     Active Substance: LEVOTHYROXINE SODIUM
     Dosage: .1 MILLIGRAM DAILY;  1?0?0?0
  15. TORASEMID [Suspect]
     Active Substance: TORSEMIDE
     Dosage: 10 MG, 2?1?0?0
  16. ZOLPIDEM [Concomitant]
     Active Substance: ZOLPIDEM TARTRATE
     Dosage: 10 MILLIGRAM DAILY;  0?0?0?1
  17. URAPIDIL [Concomitant]
     Active Substance: URAPIDIL
     Dosage: 180 MILLIGRAM DAILY; 1?1?1?0,
  18. PREGABALIN. [Concomitant]
     Active Substance: PREGABALIN
     Dosage: 150 MILLIGRAM DAILY; 0?0?1?0
  19. SIMVASTATIN. [Concomitant]
     Active Substance: SIMVASTATIN
     Dosage: 20 MILLIGRAM DAILY; 0?0?1?0

REACTIONS (1)
  - Renal impairment [Recovering/Resolving]

NARRATIVE: CASE EVENT DATE: 20210224
